FAERS Safety Report 20175334 (Version 1)
Quarter: 2021Q4

REPORT INFORMATION
  Report Type: Spontaneous
  Country: US (occurrence: None)
  Receive Date: 20211209
  Receipt Date: 20211209
  Transmission Date: 20220303
  Serious: Yes (Other)
  Sender: FDA-Public Use
  Company Number: None

PATIENT
  Age: 14 Year
  Sex: Male
  Weight: 54 kg

DRUGS (3)
  1. MONTELUKAST SODIUM CHEWABLE [Suspect]
     Active Substance: MONTELUKAST SODIUM
     Indication: Asthma
     Dosage: FREQUENCY : DAILY;?
     Route: 048
     Dates: start: 20120101, end: 20211111
  2. PROAIR HFA [Concomitant]
     Active Substance: ALBUTEROL SULFATE
  3. AUVI-Q [Concomitant]
     Active Substance: EPINEPHRINE

REACTIONS (6)
  - Tic [None]
  - Sleep terror [None]
  - Obsessive-compulsive disorder [None]
  - Disturbance in attention [None]
  - Anxiety [None]
  - Withdrawal syndrome [None]

NARRATIVE: CASE EVENT DATE: 20211101
